FAERS Safety Report 4837168-9 (Version None)
Quarter: 2005Q4

REPORT INFORMATION
  Report Type: 
  Country: None (occurrence: None)
  Receive Date: 20051122
  Receipt Date: 20051109
  Transmission Date: 20060501
  Serious: Yes (Hospitalization, Other)
  Sender: FDA-Public Use
  Company Number: 2005130634

PATIENT
  Age: 38 Year
  Sex: Female
  Weight: 64.4108 kg

DRUGS (3)
  1. DEPO-PROVERA [Suspect]
     Indication: DYSMENORRHOEA
     Dosage: SEE IMAGE
     Route: 030
     Dates: start: 20001002, end: 20001002
  2. DEPO-PROVERA [Suspect]
     Indication: DYSMENORRHOEA
     Dosage: SEE IMAGE
     Route: 030
     Dates: start: 20050930, end: 20050930
  3. PRILOSEC [Concomitant]

REACTIONS (7)
  - BLOOD TRIGLYCERIDES INCREASED [None]
  - CARDIOSPASM [None]
  - CHEST PAIN [None]
  - HYPERTENSION [None]
  - TREATMENT NONCOMPLIANCE [None]
  - VAGINAL HAEMORRHAGE [None]
  - VISION BLURRED [None]
